FAERS Safety Report 7621161-7 (Version None)
Quarter: 2011Q3

REPORT INFORMATION
  Report Type: 
  Country: None (occurrence: None)
  Receive Date: 20110719
  Receipt Date: 20110715
  Transmission Date: 20111222
  Serious: Yes (Life-Threatening, Hospitalization)
  Sender: FDA-Public Use
  Company Number: US-TEVA-290836USA

PATIENT
  Sex: Male
  Weight: 65.9 kg

DRUGS (15)
  1. CETUXIMAB [Suspect]
     Indication: HEAD AND NECK CANCER
     Route: 042
     Dates: start: 20101018, end: 20101213
  2. FLUOROURACIL [Suspect]
     Route: 042
     Dates: start: 20101210, end: 20101210
  3. CISPLATIN [Suspect]
     Indication: HEAD AND NECK CANCER
     Route: 042
     Dates: start: 20101018, end: 20101206
  4. CISPLATIN [Suspect]
     Route: 042
  5. CETUXIMAB [Suspect]
     Route: 042
  6. LOPERAMIDE HYDROCHLORIDE [Concomitant]
     Indication: PRODUCT USED FOR UNKNOWN INDICATION
     Dates: start: 20101029
  7. FLUOROURACIL [Suspect]
     Indication: HEAD AND NECK CANCER
     Route: 042
     Dates: start: 20101018, end: 20101210
  8. FLUOROURACIL [Suspect]
     Route: 042
  9. CETUXIMAB [Suspect]
     Route: 042
  10. PROCHLORPERAZINE EDISYLATE [Concomitant]
     Indication: PROPHYLAXIS
     Dates: start: 20101029
  11. CETUXIMAB [Suspect]
     Dates: start: 20101213, end: 20101213
  12. ACETAMINOPHEN [Concomitant]
     Indication: PROPHYLAXIS
     Dates: start: 20101029
  13. CISPLATIN [Suspect]
     Route: 042
     Dates: start: 20101206, end: 20101206
  14. APREPITANT [Concomitant]
     Indication: PROPHYLAXIS
     Dates: start: 20101018
  15. DEXAMETHASONE [Concomitant]
     Indication: PROPHYLAXIS
     Dates: start: 20101017

REACTIONS (5)
  - PLATELET COUNT DECREASED [None]
  - NEUTROPHIL COUNT DECREASED [None]
  - EMBOLISM [None]
  - INTESTINAL ISCHAEMIA [None]
  - BLOOD BILIRUBIN INCREASED [None]
